FAERS Safety Report 25576389 (Version 1)
Quarter: 2025Q3

REPORT INFORMATION
  Report Type: Spontaneous
  Country: US (occurrence: US)
  Receive Date: 20250718
  Receipt Date: 20250718
  Transmission Date: 20251020
  Serious: No
  Sender: ALEXION PHARMACEUTICALS
  Company Number: US-ASTRAZENECA-202507USA008404US

PATIENT
  Age: 54 Year
  Sex: Female
  Weight: 92.517 kg

DRUGS (3)
  1. TEZSPIRE [Suspect]
     Active Substance: TEZEPELUMAB-EKKO
  2. TEZSPIRE [Suspect]
     Active Substance: TEZEPELUMAB-EKKO
  3. PROLIA [Suspect]
     Active Substance: DENOSUMAB
     Route: 065

REACTIONS (5)
  - Osteoporosis [Unknown]
  - Hyperparathyroidism [Unknown]
  - Tremor [Unknown]
  - Vision blurred [Unknown]
  - Fatigue [Unknown]
